FAERS Safety Report 24428992 (Version 1)
Quarter: 2024Q4

REPORT INFORMATION
  Report Type: Report from Study
  Country: CA (occurrence: CA)
  Receive Date: 20241011
  Receipt Date: 20241011
  Transmission Date: 20250114
  Serious: Yes (Death)
  Sender: SANDOZ
  Company Number: CA-002147023-NVSC2022CA233493

PATIENT
  Age: 75 Year
  Sex: Male

DRUGS (1)
  1. HYRIMOZ [Suspect]
     Active Substance: ADALIMUMAB-ADAZ
     Indication: Ankylosing spondylitis
     Dosage: 40MG Q2 WEEKS;EVERY TWO WEEKS
     Route: 058
     Dates: start: 20220103

REACTIONS (3)
  - Fall [Fatal]
  - Head injury [Fatal]
  - COVID-19 [Unknown]

NARRATIVE: CASE EVENT DATE: 20240801
